FAERS Safety Report 13721229 (Version 1)
Quarter: 2017Q3

REPORT INFORMATION
  Report Type: Spontaneous
  Country: US (occurrence: US)
  Receive Date: 20170706
  Receipt Date: 20170706
  Transmission Date: 20171127
  Serious: No
  Sender: FDA-Public Use
  Company Number: US-GLENMARK PHARMACEUTICALS-2016GMK023538

PATIENT

DRUGS (2)
  1. MOMETASONE FUROATE. [Suspect]
     Active Substance: MOMETASONE FUROATE
     Indication: RASH PRURITIC
     Dosage: ONE APPLICATION ONCE A WEEK OR AS NEEDED
     Route: 061
     Dates: start: 20160115, end: 20160615
  2. MOMETASONE FUROATE. [Suspect]
     Active Substance: MOMETASONE FUROATE
     Indication: ARTHROPOD BITE

REACTIONS (12)
  - Sleep disorder [Recovering/Resolving]
  - Application site pruritus [Recovering/Resolving]
  - Application site erythema [Recovering/Resolving]
  - Fatigue [Recovering/Resolving]
  - Hyperhidrosis [Recovering/Resolving]
  - Anger [Recovering/Resolving]
  - Product use in unapproved indication [Unknown]
  - Application site rash [Recovering/Resolving]
  - Dizziness [Recovering/Resolving]
  - Influenza like illness [Recovering/Resolving]
  - Myalgia [Recovering/Resolving]
  - Nausea [Recovering/Resolving]

NARRATIVE: CASE EVENT DATE: 201601
